FAERS Safety Report 4378645-7 (Version None)
Quarter: 2004Q2

REPORT INFORMATION
  Report Type: 
  Country: None (occurrence: None)
  Receive Date: 20040610
  Receipt Date: 20040601
  Transmission Date: 20050107
  Serious: Yes (Hospitalization)
  Sender: FDA-Public Use
  Company Number: 2004036651

PATIENT
  Sex: Male
  Weight: 61 kg

DRUGS (3)
  1. VFEND [Suspect]
     Indication: ASPERGILLOMA
     Dosage: 400 MG (400 MG, 1 IN 1 D), ORAL
     Route: 048
     Dates: start: 20031015
  2. AMPHOTERICIN B [Concomitant]
  3. ITRACONAZOLE [Concomitant]
     Route: 048

REACTIONS (12)
  - ANOREXIA [None]
  - BALANCE DISORDER [None]
  - BODY TEMPERATURE INCREASED [None]
  - DEPRESSION [None]
  - DIZZINESS [None]
  - DRY MOUTH [None]
  - FATIGUE [None]
  - HALLUCINATION, VISUAL [None]
  - NAUSEA [None]
  - PARAESTHESIA [None]
  - TRANSAMINASES INCREASED [None]
  - VISUAL ACUITY REDUCED [None]
